FAERS Safety Report 11698212 (Version 2)
Quarter: 2016Q4

REPORT INFORMATION
  Report Type: Report from Study
  Country: JP (occurrence: JP)
  Receive Date: 20151104
  Receipt Date: 20161028
  Transmission Date: 20170206
  Serious: Yes (Other)
  Sender: FDA-Public Use
  Company Number: PHJP2015JP018956

PATIENT
  Age: 73 Year
  Sex: Female

DRUGS (6)
  1. SULFAMETHOXAZOLE AND TRIMETHOPRIM [Concomitant]
     Active Substance: SULFAMETHOXAZOLE\TRIMETHOPRIM
     Indication: PROPHYLAXIS
     Dosage: 1 G, UNK
     Route: 048
  2. VELCADE [Suspect]
     Active Substance: BORTEZOMIB
     Indication: PLASMA CELL MYELOMA
     Dosage: UNK
     Route: 065
  3. DEXAMETHASONE. [Suspect]
     Active Substance: DEXAMETHASONE
     Indication: PLASMA CELL MYELOMA
     Dosage: UNK
     Route: 048
  4. FARYDAK [Suspect]
     Active Substance: PANOBINOSTAT
     Indication: PLASMA CELL MYELOMA
     Dosage: 20 MG, QD
     Route: 048
     Dates: start: 20151021, end: 20151026
  5. CLALET [Concomitant]
     Indication: PROPHYLAXIS
     Dosage: 1 MG, UNK
     Route: 048
     Dates: start: 20151021, end: 20151023
  6. ACICLOVIR [Concomitant]
     Active Substance: ACYCLOVIR
     Indication: PROPHYLAXIS
     Dosage: 100 MG, UNK
     Route: 048

REACTIONS (9)
  - Blood creatinine increased [Not Recovered/Not Resolved]
  - Renal impairment [Recovered/Resolved]
  - Diarrhoea [Not Recovered/Not Resolved]
  - Plasma cell myeloma [Unknown]
  - Electrolyte imbalance [Unknown]
  - White blood cell count decreased [Unknown]
  - Hepatic function abnormal [Recovered/Resolved]
  - Malignant neoplasm progression [Unknown]
  - Dehydration [Unknown]

NARRATIVE: CASE EVENT DATE: 20151022
